FAERS Safety Report 7709311-5 (Version None)
Quarter: 2011Q3

REPORT INFORMATION
  Report Type: 
  Country: None (occurrence: None)
  Receive Date: 20110819
  Receipt Date: 20110521
  Transmission Date: 20111222
  Serious: Yes (Hospitalization)
  Sender: FDA-Public Use
  Company Number: WAES 1004USA04847

PATIENT
  Age: 48 Year
  Sex: Male
  Weight: 70.3075 kg

DRUGS (5)
  1. ASPIRIN [Concomitant]
  2. OMEGA-3 MARINE TRIGLYCERIDES [Concomitant]
  3. EMTRICITABINE AND TENOFOVIR DISOPROXIL FUMARATE [Suspect]
     Indication: HIV INFECTION
     Dosage: 500 MO/DAILY/PO
     Route: 048
     Dates: start: 20091109
  4. ISENTRESS [Suspect]
     Indication: HIV INFECTION
     Dosage: 400 MG/BID/PO
     Route: 048
     Dates: start: 20091109
  5. VITAMINS (UNSPECIFIED) [Concomitant]

REACTIONS (6)
  - ABDOMINAL MASS [None]
  - CD4 LYMPHOCYTES DECREASED [None]
  - CHOLECYSTITIS [None]
  - BODY TEMPERATURE INCREASED [None]
  - BASAL CELL CARCINOMA [None]
  - CHOLELITHIASIS [None]
